FAERS Safety Report 5315109-8 (Version None)
Quarter: 2007Q2

REPORT INFORMATION
  Report Type: 
  Country: None (occurrence: None)
  Receive Date: 20070502
  Receipt Date: 20070424
  Transmission Date: 20071010
  Serious: Yes (Hospitalization, Other)
  Sender: FDA-Public Use
  Company Number: JP-ABBOTT-07P-087-0365901-00

PATIENT
  Age: 61 Year
  Sex: Female

DRUGS (6)
  1. BIPERIDEN HYDROCHLORIDE TAB [Suspect]
     Indication: CATATONIA
     Route: 030
  2. VALPROATE SODIUM [Suspect]
     Indication: MAJOR DEPRESSION
  3. HALOPERIDOL [Suspect]
     Indication: BIPOLAR I DISORDER
  4. HALOPERIDOL [Suspect]
     Indication: CATATONIA
  5. LEVOMEPROMAZINE [Suspect]
     Indication: BIPOLAR I DISORDER
  6. CLOMIPRAMINE HCL [Suspect]
     Indication: CATATONIA
     Route: 042

REACTIONS (1)
  - CATATONIA [None]
